FAERS Safety Report 6792352-2 (Version None)
Quarter: 2010Q2

REPORT INFORMATION
  Report Type: 
  Country: None (occurrence: None)
  Receive Date: 20100624
  Receipt Date: 20081007
  Transmission Date: 20101027
  Serious: No
  Sender: FDA-Public Use
  Company Number: US-PFIZER INC-2008063541

PATIENT
  Sex: Female

DRUGS (4)
  1. SOMAVERT [Suspect]
     Indication: GROWTH ACCELERATED
  2. DYAZIDE [Concomitant]
  3. TENORMIN [Concomitant]
  4. ACETYLSALICYLIC ACID [Concomitant]

REACTIONS (6)
  - GAMMA RADIATION THERAPY [None]
  - INCONTINENCE [None]
  - MEDICATION ERROR [None]
  - MUSCLE SPASMS [None]
  - SPIDER VEIN [None]
  - WEIGHT INCREASED [None]
